FAERS Safety Report 14145073 (Version 1)
Quarter: 2017Q4

REPORT INFORMATION
  Report Type: Spontaneous
  Country: US (occurrence: None)
  Receive Date: 20171030
  Receipt Date: 20171030
  Transmission Date: 20180321
  Serious: Yes (Hospitalization)
  Sender: FDA-Public Use
  Company Number: None

PATIENT
  Age: 62 Year
  Sex: Male

DRUGS (8)
  1. TRAMADOL. [Concomitant]
     Active Substance: TRAMADOL
  2. KLOR-CON [Concomitant]
     Active Substance: POTASSIUM CHLORIDE
  3. SILDENAFIL. [Concomitant]
     Active Substance: SILDENAFIL
  4. LETAIRIS [Suspect]
     Active Substance: AMBRISENTAN
     Indication: CONNECTIVE TISSUE DISORDER
     Route: 048
     Dates: start: 201611
  5. LETAIRIS [Suspect]
     Active Substance: AMBRISENTAN
     Indication: PULMONARY ARTERIAL HYPERTENSION
     Route: 048
     Dates: start: 201611
  6. LETAIRIS [Suspect]
     Active Substance: AMBRISENTAN
     Indication: HEART DISEASE CONGENITAL
     Route: 048
     Dates: start: 201611
  7. FUROSEMIDE. [Concomitant]
     Active Substance: FUROSEMIDE
  8. METOLAZONE. [Concomitant]
     Active Substance: METOLAZONE

REACTIONS (6)
  - Gastritis erosive [None]
  - Gastric ulcer [None]
  - Laboratory test abnormal [None]
  - Dyspnoea [None]
  - Haemoglobin decreased [None]
  - Fatigue [None]

NARRATIVE: CASE EVENT DATE: 20171005
